FAERS Safety Report 9982255 (Version 1)
Quarter: 2014Q1

REPORT INFORMATION
  Report Type: Report from Study
  Country: US (occurrence: US)
  Receive Date: 20140307
  Receipt Date: 20140307
  Transmission Date: 20141002
  Serious: No
  Sender: FDA-Public Use
  Company Number: US-ABBVIE-13P-163-1179488-00

PATIENT
  Age: 71 Year
  Sex: Male
  Weight: 92.16 kg

DRUGS (3)
  1. HUMIRA [Suspect]
     Indication: PSORIASIS
  2. METFORMIN [Concomitant]
     Indication: PRODUCT USED FOR UNKNOWN INDICATION
  3. PRAVASTATIN [Concomitant]
     Indication: PRODUCT USED FOR UNKNOWN INDICATION

REACTIONS (4)
  - Device issue [Not Recovered/Not Resolved]
  - Injection site pain [Not Recovered/Not Resolved]
  - Skin injury [Unknown]
  - Incorrect dose administered [Not Recovered/Not Resolved]
